FAERS Safety Report 6750026-8 (Version None)
Quarter: 2010Q2

REPORT INFORMATION
  Report Type: 
  Country: None (occurrence: None)
  Receive Date: 20100601
  Receipt Date: 20100519
  Transmission Date: 20101027
  Serious: Yes (Disabling)
  Sender: FDA-Public Use
  Company Number: CA-CELGENEUS-028-21880-10051825

PATIENT
  Age: 67 Year
  Sex: Male

DRUGS (1)
  1. REVLIMID [Suspect]
     Indication: DRUG USE FOR UNKNOWN INDICATION
     Route: 048
     Dates: end: 20100505

REACTIONS (5)
  - BEDRIDDEN [None]
  - DECREASED APPETITE [None]
  - DYSURIA [None]
  - STOMATITIS [None]
  - WEIGHT DECREASED [None]
